FAERS Safety Report 22092415 (Version 1)
Quarter: 2023Q1

REPORT INFORMATION
  Report Type: Spontaneous
  Country: US (occurrence: US)
  Receive Date: 20230314
  Receipt Date: 20230314
  Transmission Date: 20230417
  Serious: Yes (Other)
  Sender: FDA-Public Use
  Company Number: US-AUROBINDO-AUR-APL-2023-006420

PATIENT
  Age: 10 Year
  Sex: Male

DRUGS (12)
  1. ACETAMINOPHEN [Suspect]
     Active Substance: ACETAMINOPHEN
     Indication: Neuralgia
     Dosage: UNK
     Route: 065
  2. CYTARABINE [Concomitant]
     Active Substance: CYTARABINE
     Indication: Acute lymphocytic leukaemia
     Dosage: UNK
     Route: 065
  3. DAUNORUBICIN [Concomitant]
     Active Substance: DAUNORUBICIN
     Indication: Acute lymphocytic leukaemia
     Dosage: UNK
     Route: 065
  4. DULOXETINE [Concomitant]
     Active Substance: DULOXETINE
     Indication: Anxiety
     Dosage: 30 MILLIGRAM, ONCE A DAY (NIGHTLY)
     Route: 065
  5. DULOXETINE [Concomitant]
     Active Substance: DULOXETINE
     Indication: Neuralgia
  6. GABAPENTIN [Concomitant]
     Active Substance: GABAPENTIN
     Indication: Neuralgia
     Dosage: UNK
     Route: 065
  7. LORAZEPAM [Concomitant]
     Active Substance: LORAZEPAM
     Indication: Anxiety
     Dosage: UNK
     Route: 065
  8. METHOTREXATE [Concomitant]
     Active Substance: METHOTREXATE
     Indication: Acute lymphocytic leukaemia
     Dosage: UNK
     Route: 065
  9. MORPHINE [Concomitant]
     Active Substance: MORPHINE
     Indication: Neuralgia
     Dosage: AS NEEDED
     Route: 065
  10. PEGASPARGASE [Concomitant]
     Active Substance: PEGASPARGASE
     Indication: Acute lymphocytic leukaemia
     Dosage: UNK
     Route: 065
  11. PREDNISONE [Concomitant]
     Active Substance: PREDNISONE
     Indication: Acute lymphocytic leukaemia
     Dosage: UNK
     Route: 065
  12. VINCRISTINE [Concomitant]
     Active Substance: VINCRISTINE
     Indication: Acute lymphocytic leukaemia
     Dosage: UNK
     Route: 065

REACTIONS (1)
  - Drug ineffective [Unknown]
